FAERS Safety Report 6721842-3 (Version None)
Quarter: 2010Q2

REPORT INFORMATION
  Report Type: 
  Country: None (occurrence: None)
  Receive Date: 20100512
  Receipt Date: 20100308
  Transmission Date: 20101027
  Serious: Yes (Hospitalization, Other)
  Sender: FDA-Public Use
  Company Number: PHHY2010CN14917

PATIENT
  Age: 40 Year
  Sex: Male

DRUGS (9)
  1. SANDOSTATIN [Suspect]
     Dosage: 0.2 MG
     Route: 042
  2. SALINE [Concomitant]
     Dosage: 100 ML
  3. OMEPRAZOLE [Concomitant]
     Dosage: 40 MG, Q12H
  4. GLUCOSE [Concomitant]
     Dosage: 500 ML
  5. VITAMIN K3 [Concomitant]
     Dosage: 20 MG
  6. MAGNESIUM SULFATE [Concomitant]
     Dosage: 10 ML
  7. PHLOROGLUCINOL [Concomitant]
     Dosage: 80 MG
  8. CEFTAZIDIME [Concomitant]
     Dosage: 3 G, BID
  9. TINIDAZOLE [Concomitant]
     Dosage: 200 ML, QD

REACTIONS (8)
  - ASTHENIA [None]
  - BLOOD PRESSURE ABNORMAL [None]
  - BREATH HOLDING [None]
  - CHEST DISCOMFORT [None]
  - HEART RATE DECREASED [None]
  - HYPERHIDROSIS [None]
  - PALPITATIONS [None]
  - SINUS BRADYCARDIA [None]
